FAERS Safety Report 5689761-1 (Version None)
Quarter: 2008Q1

REPORT INFORMATION
  Report Type: 
  Country: None (occurrence: None)
  Receive Date: 20080328
  Receipt Date: 20080319
  Transmission Date: 20080703
  Serious: Yes (Death, Hospitalization)
  Sender: FDA-Public Use
  Company Number: AZAUS200800077

PATIENT
  Age: 71 Year
  Sex: Male
  Weight: 103 kg

DRUGS (9)
  1. VIDAZA [Suspect]
     Indication: MYELODYSPLASTIC SYNDROME
     Dosage: (75 MG/M2,DAILY X 5 DAYS), INTRAVENOUS
     Route: 042
     Dates: start: 20080218, end: 20080222
  2. KYTRIL [Concomitant]
  3. ANIDULAFUNGIN (ANIDULAFUNGIN) [Concomitant]
  4. AZITHROMYCIN [Concomitant]
  5. FLORINEF [Concomitant]
  6. HYDROCORTISONE [Concomitant]
  7. INSULIN (INSULIN) [Concomitant]
  8. MEROPENEM (MEROPENEM) [Concomitant]
  9. VANCOMYCIN [Concomitant]

REACTIONS (7)
  - CARDIAC TAMPONADE [None]
  - HYPERKALAEMIA [None]
  - METABOLIC ACIDOSIS [None]
  - PERICARDITIS [None]
  - RENAL FAILURE ACUTE [None]
  - SEPTIC SHOCK [None]
  - STAPHYLOCOCCAL INFECTION [None]
